FAERS Safety Report 4844031-6 (Version None)
Quarter: 2005Q4

REPORT INFORMATION
  Report Type: 
  Country: None (occurrence: None)
  Receive Date: 20051202
  Receipt Date: 20051114
  Transmission Date: 20060501
  Serious: Yes (Hospitalization)
  Sender: FDA-Public Use
  Company Number: US-MERCK-0511USA02269

PATIENT
  Sex: Female
  Weight: 61 kg

DRUGS (13)
  1. VIOXX [Suspect]
     Indication: ARTHRITIS
     Route: 048
     Dates: start: 20020325, end: 20040518
  2. VIOXX [Suspect]
     Indication: ARTHRALGIA
     Route: 048
     Dates: start: 20020325, end: 20040518
  3. SYNTHROID [Concomitant]
     Route: 065
  4. PLAVIX [Concomitant]
     Route: 065
  5. LISINOPRIL [Concomitant]
     Route: 065
  6. DELTASONE [Concomitant]
     Route: 065
  7. ACIPHEX [Concomitant]
     Route: 065
  8. NORVASC [Concomitant]
     Route: 065
  9. FUROSEMIDE [Concomitant]
     Route: 065
  10. FLONASE [Concomitant]
     Route: 055
  11. ALBUTEROL [Concomitant]
     Route: 065
  12. VIOXX [Suspect]
     Route: 048
     Dates: start: 20040518, end: 20040928
  13. VIOXX [Suspect]
     Route: 048
     Dates: start: 20040518, end: 20040928

REACTIONS (5)
  - ASTHENIA [None]
  - CEREBROVASCULAR ACCIDENT [None]
  - CONFUSIONAL STATE [None]
  - HEART RATE IRREGULAR [None]
  - MYOCARDIAL INFARCTION [None]
